FAERS Safety Report 16747717 (Version 2)
Quarter: 2020Q3

REPORT INFORMATION
  Report Type: Report from Study
  Country: US (occurrence: US)
  Receive Date: 20190827
  Receipt Date: 20190902
  Transmission Date: 20201105
  Serious: Yes (Hospitalization, Other)
  Sender: FDA-Public Use
  Company Number: US-JNJFOC-20190823510

PATIENT
  Age: 60 Year
  Sex: Female
  Weight: 108.3 kg

DRUGS (17)
  1. SUCRALFATE. [Concomitant]
     Active Substance: SUCRALFATE
  2. LENALIDOMIDE [Suspect]
     Active Substance: LENALIDOMIDE
     Dosage: C2D2
     Route: 048
     Dates: start: 20190814, end: 20190814
  3. GABAPENTIN. [Concomitant]
     Active Substance: GABAPENTIN
  4. HYOSCYAMINE. [Concomitant]
     Active Substance: HYOSCYAMINE
  5. DARATUMUMAB [Suspect]
     Active Substance: DARATUMUMAB
     Indication: PLASMA CELL MYELOMA
     Dosage: CYCLE 2 BEGAN ON 13?AUG?2019
     Route: 042
     Dates: start: 20190717, end: 20190814
  6. FLUOXETINE [Concomitant]
     Active Substance: FLUOXETINE HYDROCHLORIDE
  7. CARFILZOMIB [Suspect]
     Active Substance: CARFILZOMIB
     Indication: PLASMA CELL MYELOMA
     Route: 042
     Dates: start: 20190717, end: 20190814
  8. CALCIUM W/COLECALCIFEROL [Concomitant]
     Active Substance: CALCIUM\CHOLECALCIFEROL
  9. LANSOPRAZOLE. [Concomitant]
     Active Substance: LANSOPRAZOLE
  10. TRIAMCINOLONE [Concomitant]
     Active Substance: TRIAMCINOLONE
     Dosage: 0.1 % OINTMENT
     Route: 061
  11. LENALIDOMIDE [Suspect]
     Active Substance: LENALIDOMIDE
     Indication: PLASMA CELL MYELOMA
     Dosage: QD FOR 21 DAY /MO
     Route: 048
     Dates: start: 20190717, end: 20190814
  12. VALACYCLOVIR [Concomitant]
     Active Substance: VALACYCLOVIR HYDROCHLORIDE
  13. VITAMIN D                          /00107901/ [Concomitant]
     Active Substance: ERGOCALCIFEROL
     Dosage: 2000
  14. NAPROXEN. [Concomitant]
     Active Substance: NAPROXEN
     Dosage: 500 RN
  15. DEXAMETHASONE. [Suspect]
     Active Substance: DEXAMETHASONE
     Indication: PLASMA CELL MYELOMA
     Route: 048
     Dates: start: 20190717, end: 20190814
  16. ATORVASTIN [Concomitant]
     Active Substance: ATORVASTATIN
  17. LEVOTHYROXINE. [Concomitant]
     Active Substance: LEVOTHYROXINE
     Dosage: BEFORE BREAKFAST

REACTIONS (5)
  - Colitis [Unknown]
  - Syncope [Recovered/Resolved]
  - Injection site haemorrhage [Unknown]
  - Diverticulum [Unknown]
  - Pulmonary embolism [Unknown]

NARRATIVE: CASE EVENT DATE: 20190814
